FAERS Safety Report 8234238 (Version 2)
Quarter: 2012Q4

REPORT INFORMATION
  Report Type: 
  Country: US (occurrence: US)
  Receive Date: 20111107
  Receipt Date: 20121107
  Transmission Date: 20130627
  Serious: No
  Sender: FDA-Public Use
  Company Number: US-AMGEN-USASP2011047916

PATIENT
  Age: 57 Year
  Sex: Female

DRUGS (3)
  1. ENBREL [Suspect]
     Indication: RHEUMATOID ARTHRITIS
     Dosage: 50 mg, qwk
     Dates: start: 20110601, end: 20110801
  2. PLAQUENIL                          /00072603/ [Concomitant]
     Dosage: 1 mg, UNK
     Dates: start: 201012
  3. TREXALL [Concomitant]
     Dosage: 4 mg, UNK
     Dates: start: 20101130

REACTIONS (5)
  - Rheumatoid arthritis [Not Recovered/Not Resolved]
  - Fatigue [Unknown]
  - Nausea [Not Recovered/Not Resolved]
  - Irritability [Not Recovered/Not Resolved]
  - Infection [Unknown]
